FAERS Safety Report 16742003 (Version 7)
Quarter: 2020Q1

REPORT INFORMATION
  Report Type: Report from Study
  Country: US (occurrence: US)
  Receive Date: 20190826
  Receipt Date: 20200331
  Transmission Date: 20200409
  Serious: Yes (Hospitalization, Other)
  Sender: FDA-Public Use
  Company Number: US-MALLINCKRODT-T201901101

PATIENT
  Age: 74 Year
  Sex: Female

DRUGS (11)
  1. REPOSITORY CORTICOTROPIN INJECTION [Suspect]
     Active Substance: CORTICOTROPIN
     Indication: CYSTOID MACULAR OEDEMA
     Dosage: 80 UNITS/1 ML, EVERY 4 DAYS
     Route: 058
  2. CANNABIDIOL [Suspect]
     Active Substance: CANNABIDIOL
     Indication: BACK PAIN
     Dosage: UNK
     Route: 065
  3. REPOSITORY CORTICOTROPIN INJECTION [Suspect]
     Active Substance: CORTICOTROPIN
     Indication: UVEITIS
     Dosage: 80 UNITS/1 ML, EVERY 5 DAYS
     Route: 058
     Dates: start: 20170711
  4. PREDNISONE. [Concomitant]
     Active Substance: PREDNISONE
     Dosage: 10 MG, UNK
     Route: 065
  5. REPOSITORY CORTICOTROPIN INJECTION [Suspect]
     Active Substance: CORTICOTROPIN
     Dosage: 80 UNITS/1 ML, EVERY 3 DAYS
     Route: 058
  6. REPOSITORY CORTICOTROPIN INJECTION [Suspect]
     Active Substance: CORTICOTROPIN
     Dosage: 80 UNITS/ 1 ML, EVERY 3 DAYS/EVERY 72 HOURS
     Route: 058
     Dates: start: 2020
  7. REPOSITORY CORTICOTROPIN INJECTION [Suspect]
     Active Substance: CORTICOTROPIN
     Dosage: 80 UNITS/1 ML, EVERY 3 DAYS
     Route: 058
     Dates: end: 2019
  8. REPOSITORY CORTICOTROPIN INJECTION [Suspect]
     Active Substance: CORTICOTROPIN
     Dosage: 80 UNITS/ 1 ML, EVERY 3 DAYS/EVERY 72 HOURS
     Route: 058
     Dates: start: 2019
  9. PREDNISONE. [Concomitant]
     Active Substance: PREDNISONE
     Indication: PRODUCT USED FOR UNKNOWN INDICATION
     Dosage: 3 MG, UNK
     Route: 065
  10. REPOSITORY CORTICOTROPIN INJECTION [Suspect]
     Active Substance: CORTICOTROPIN
     Dosage: 80 UNITS/1 ML, EVERY 2 DAYS
     Route: 058
  11. REPOSITORY CORTICOTROPIN INJECTION [Suspect]
     Active Substance: CORTICOTROPIN
     Dosage: 80 UNITS/1 ML, EVERY 5 DAYS
     Route: 058
     Dates: start: 2019

REACTIONS (18)
  - Uveitis [Unknown]
  - Fatigue [Not Recovered/Not Resolved]
  - Pyrexia [Recovering/Resolving]
  - Therapeutic product effect incomplete [Unknown]
  - Product dose omission [Recovering/Resolving]
  - Eye oedema [Not Recovered/Not Resolved]
  - Dry eye [Not Recovered/Not Resolved]
  - Retinopexy [Not Recovered/Not Resolved]
  - Pneumonia [Recovering/Resolving]
  - Immunosuppression [Recovering/Resolving]
  - Back pain [Not Recovered/Not Resolved]
  - Gait disturbance [Recovering/Resolving]
  - Productive cough [Not Recovered/Not Resolved]
  - Retinal detachment [Not Recovered/Not Resolved]
  - Fall [Recovering/Resolving]
  - Intraocular pressure increased [Not Recovered/Not Resolved]
  - Cough [Unknown]
  - Oropharyngeal pain [Recovering/Resolving]

NARRATIVE: CASE EVENT DATE: 20190301
